FAERS Safety Report 24878900 (Version 2)
Quarter: 2025Q1

REPORT INFORMATION
  Report Type: Spontaneous
  Country: US (occurrence: US)
  Receive Date: 20250123
  Receipt Date: 20250123
  Transmission Date: 20250409
  Serious: Yes (Hospitalization)
  Sender: CSL BEHRING
  Company Number: US-BEH-2025192564

PATIENT
  Age: 80 Year
  Sex: Female
  Weight: 71 kg

DRUGS (2)
  1. MIRCERA [Suspect]
     Active Substance: METHOXY POLYETHYLENE GLYCOL-EPOETIN BETA
     Indication: Anaemia
     Dosage: 200 ?G, QOW
     Route: 042
     Dates: start: 20241210, end: 20241210
  2. VENOFER [Suspect]
     Active Substance: IRON SUCROSE
     Route: 040

REACTIONS (6)
  - Drug hypersensitivity [Unknown]
  - Dyspnoea [Unknown]
  - Abdominal pain [Unknown]
  - Pallor [Unknown]
  - Cyanosis [Unknown]
  - Oxygen saturation abnormal [Unknown]

NARRATIVE: CASE EVENT DATE: 20241210
